FAERS Safety Report 7411049-9 (Version None)
Quarter: 2011Q2

REPORT INFORMATION
  Report Type: 
  Country: None (occurrence: None)
  Receive Date: 20110413
  Receipt Date: 20110404
  Transmission Date: 20111010
  Serious: Yes (Hospitalization)
  Sender: FDA-Public Use
  Company Number: KR-JNJFOC-20110200210

PATIENT
  Sex: Female
  Weight: 49.6 kg

DRUGS (14)
  1. METHOTREXATE [Suspect]
     Indication: RHEUMATOID ARTHRITIS
     Route: 048
  2. ADCAL [Concomitant]
     Route: 048
  3. NIFERON CR [Concomitant]
     Route: 048
  4. EUPATILIN [Concomitant]
  5. METHYLPREDNISOLONE [Concomitant]
     Route: 048
  6. METHOTREXATE [Concomitant]
     Route: 048
  7. SOMALGEN [Concomitant]
     Route: 048
  8. STILLEN [Concomitant]
     Indication: GASTROINTESTINAL DISORDER THERAPY
     Route: 048
  9. PANTOLINE [Concomitant]
     Indication: REFLUX OESOPHAGITIS
     Route: 048
  10. FOLIN [Concomitant]
     Route: 048
  11. BONIVA [Concomitant]
     Route: 042
  12. PANTOLINE [Concomitant]
     Indication: GASTRITIS
     Route: 048
  13. GOLIMUMAB [Suspect]
     Indication: RHEUMATOID ARTHRITIS
     Route: 058
  14. GOLIMUMAB [Suspect]
     Route: 058

REACTIONS (2)
  - ADENOMA BENIGN [None]
  - GASTRITIS HAEMORRHAGIC [None]
